FAERS Safety Report 11374512 (Version 1)
Quarter: 2015Q3

REPORT INFORMATION
  Report Type: Spontaneous
  Country: US (occurrence: None)
  Receive Date: 20150812
  Receipt Date: 20150812
  Transmission Date: 20151125
  Serious: No
  Sender: FDA-Public Use
  Company Number: None

PATIENT
  Age: 31 Year
  Sex: Female
  Weight: 90.72 kg

DRUGS (7)
  1. GENERIC ADDERALL 30MG AUROBINDO [Suspect]
     Active Substance: AMPHETAMINE ASPARTATE\AMPHETAMINE SULFATE\DEXTROAMPHETAMINE SACCHARATE\DEXTROAMPHETAMINE SULFATE
     Indication: INTENTIONAL SELF-INJURY
     Route: 048
     Dates: start: 20150801, end: 20150811
  2. TUMERIC PILLS [Concomitant]
  3. HAIR SKIN NAILS VITAMIN [Concomitant]
  4. GENERIC ADDERALL 30MG AUROBINDO [Suspect]
     Active Substance: AMPHETAMINE ASPARTATE\AMPHETAMINE SULFATE\DEXTROAMPHETAMINE SACCHARATE\DEXTROAMPHETAMINE SULFATE
     Indication: DISTURBANCE IN ATTENTION
     Route: 048
     Dates: start: 20150801, end: 20150811
  5. ZYRTEC [Concomitant]
     Active Substance: CETIRIZINE HYDROCHLORIDE
  6. GENERIC ADDERALL 30MG AUROBINDO [Suspect]
     Active Substance: AMPHETAMINE ASPARTATE\AMPHETAMINE SULFATE\DEXTROAMPHETAMINE SACCHARATE\DEXTROAMPHETAMINE SULFATE
     Indication: RESTLESS LEGS SYNDROME
     Route: 048
     Dates: start: 20150801, end: 20150811
  7. GENERIC ADDERALL 30MG AUROBINDO [Suspect]
     Active Substance: AMPHETAMINE ASPARTATE\AMPHETAMINE SULFATE\DEXTROAMPHETAMINE SACCHARATE\DEXTROAMPHETAMINE SULFATE
     Indication: ANXIETY
     Route: 048
     Dates: start: 20150801, end: 20150811

REACTIONS (6)
  - Product formulation issue [None]
  - Headache [None]
  - Social phobia [None]
  - Product substitution issue [None]
  - Depression [None]
  - Anxiety [None]

NARRATIVE: CASE EVENT DATE: 20150801
